FAERS Safety Report 14742113 (Version 6)
Quarter: 2018Q3

REPORT INFORMATION
  Report Type: Report from Study
  Country: IT (occurrence: IT)
  Receive Date: 20180410
  Receipt Date: 20180703
  Transmission Date: 20181010
  Serious: Yes (Hospitalization, Other)
  Sender: FDA-Public Use
  Company Number: IT-PFIZER INC-2018142396

PATIENT
  Age: 51 Year
  Sex: Female

DRUGS (4)
  1. VENLAFAXINE HCL [Suspect]
     Active Substance: VENLAFAXINE HYDROCHLORIDE
     Dosage: 5 DF, ONCE,IN TOTAL
     Route: 048
     Dates: start: 20170805, end: 20170805
  2. CETIRIZINE HYDROCHLORIDE AND PSEUDOEPHEDRINE [Suspect]
     Active Substance: CETIRIZINE HYDROCHLORIDE\PSEUDOEPHEDRINE HYDROCHLORIDE
     Dosage: 12 DF, ONCE, IN TOTAL
     Route: 048
     Dates: start: 20170805, end: 20170805
  3. QUETIAPINE FUMARATE. [Suspect]
     Active Substance: QUETIAPINE FUMARATE
     Dosage: 60 DF, ONCE, IN TOTAL
     Route: 048
     Dates: start: 20170805, end: 20170805
  4. AERIUS [Suspect]
     Active Substance: DESLORATADINE
     Dosage: 3 DF, ONCE, IN TOTAL
     Route: 048
     Dates: start: 20170805, end: 20170805

REACTIONS (5)
  - Intentional overdose [Unknown]
  - Self-injurious ideation [Recovered/Resolved]
  - Condition aggravated [Recovered/Resolved]
  - Drug abuse [Recovered/Resolved]
  - Coma [Recovered/Resolved]

NARRATIVE: CASE EVENT DATE: 20170805
